FAERS Safety Report 10714821 (Version 1)
Quarter: 2015Q1

REPORT INFORMATION
  Report Type: Spontaneous
  Country: US (occurrence: US)
  Receive Date: 20150115
  Receipt Date: 20150115
  Transmission Date: 20150721
  Serious: Yes (Death, Other)
  Sender: FDA-Public Use
  Company Number: US-GLAXOSMITHKLINE-US2015GSK003104

PATIENT
  Age: 55 Year
  Sex: Male

DRUGS (5)
  1. PESTICIDE [Suspect]
     Active Substance: UNSPECIFIED INGREDIENT
     Route: 048
  2. METFORMIN [Suspect]
     Active Substance: METFORMIN HYDROCHLORIDE
     Route: 048
  3. PRASUGREL [Suspect]
     Active Substance: PRASUGREL
     Route: 048
  4. CARVEDILOL. [Suspect]
     Active Substance: CARVEDILOL
     Route: 048
  5. ETHANOL [Suspect]
     Active Substance: ALCOHOL
     Route: 048

REACTIONS (1)
  - Death [Fatal]
